FAERS Safety Report 7149360-1 (Version None)
Quarter: 2010Q4

REPORT INFORMATION
  Report Type: 
  Country: None (occurrence: None)
  Receive Date: 20101209
  Receipt Date: 20101029
  Transmission Date: 20110411
  Serious: No
  Sender: FDA-Public Use
  Company Number: US-KINGPHARMUSA00001-K201001335

PATIENT
  Sex: Male

DRUGS (3)
  1. EMBEDA [Suspect]
     Indication: BACK PAIN
     Dosage: 30 MG, QD
     Route: 048
     Dates: start: 20100723, end: 20101026
  2. TAPENTADOL [Concomitant]
  3. XANAX [Concomitant]

REACTIONS (2)
  - AMNESIA [None]
  - DISORIENTATION [None]
